FAERS Safety Report 6155365-X (Version None)
Quarter: 2009Q2

REPORT INFORMATION
  Report Type: 
  Country: None (occurrence: None)
  Receive Date: 20090415
  Receipt Date: 20090408
  Transmission Date: 20091009
  Serious: Yes (Hospitalization, Other)
  Sender: FDA-Public Use
  Company Number: US-AVENTIS-200913043US

PATIENT
  Sex: Female
  Weight: 111 kg

DRUGS (16)
  1. LANTUS [Suspect]
     Indication: TYPE 2 DIABETES MELLITUS
     Route: 058
     Dates: start: 20090407
  2. LANTUS [Suspect]
     Route: 058
     Dates: end: 20090401
  3. OPTICLIK (INSULIN INJECTION PEN) [Suspect]
     Indication: TYPE 2 DIABETES MELLITUS
  4. NOVOLOG [Concomitant]
     Dosage: DOSE: 3 TIMES ON SLIDING SCALE
  5. AGGRENOX [Concomitant]
  6. ALLEGRA [Concomitant]
     Dosage: DOSE: ONE TIME
  7. ALBUTEROL [Concomitant]
     Dosage: DOSE: UNK
  8. DARVOCET-N 100 [Concomitant]
  9. HYZAAR [Concomitant]
  10. ISOSORBIDE [Concomitant]
  11. LOPID [Concomitant]
  12. NORVASC [Concomitant]
  13. POTASSIUM CHLORIDE [Concomitant]
  14. PREVACID [Concomitant]
  15. VIT D [Concomitant]
     Dosage: DOSE: UNK
  16. ZETIA [Concomitant]

REACTIONS (2)
  - CHOLELITHOTOMY [None]
  - DIVERTICULITIS [None]
